FAERS Safety Report 18031056 (Version 1)
Quarter: 2020Q3

REPORT INFORMATION
  Report Type: Spontaneous
  Country: CN (occurrence: CN)
  Receive Date: 20200716
  Receipt Date: 20200716
  Transmission Date: 20201103
  Serious: Yes (Other)
  Sender: FDA-Public Use
  Company Number: CN-ELI_LILLY_AND_COMPANY-CN202007003173

PATIENT
  Age: 50 Year
  Sex: Female
  Weight: 65 kg

DRUGS (2)
  1. HUMULIN 70/30 [Suspect]
     Active Substance: INSULIN HUMAN
     Indication: DIABETES MELLITUS
     Dosage: 18 U, EACH MORNING
     Route: 058
     Dates: start: 2008
  2. HUMULIN 70/30 [Suspect]
     Active Substance: INSULIN HUMAN
     Dosage: 15 U, DAILY (AT NIGHT)
     Route: 058
     Dates: start: 2008

REACTIONS (3)
  - Cardiac disorder [Not Recovered/Not Resolved]
  - Incorrect dose administered [Unknown]
  - Blindness [Not Recovered/Not Resolved]
